FAERS Safety Report 21324875 (Version 1)
Quarter: 2022Q3

REPORT INFORMATION
  Report Type: Report from Study
  Country: CA (occurrence: CA)
  Receive Date: 20220912
  Receipt Date: 20220912
  Transmission Date: 20221027
  Serious: Yes (Death, Other)
  Sender: FDA-Public Use
  Company Number: CA-GILEAD-2022-0597337

PATIENT
  Sex: Female

DRUGS (5)
  1. SACITUZUMAB GOVITECAN [Suspect]
     Active Substance: SACITUZUMAB GOVITECAN
     Indication: Triple negative breast cancer
     Dosage: 652 MG
     Route: 042
     Dates: start: 20220315, end: 20220607
  2. XELODA [Concomitant]
     Active Substance: CAPECITABINE
  3. FEC D [Concomitant]
  4. CAPECITABINE [Concomitant]
     Active Substance: CAPECITABINE
  5. OLAPARIB [Concomitant]
     Active Substance: OLAPARIB

REACTIONS (1)
  - Death [Fatal]

NARRATIVE: CASE EVENT DATE: 20220101
